FAERS Safety Report 25856653 (Version 2)
Quarter: 2025Q4

REPORT INFORMATION
  Report Type: Spontaneous
  Country: IN (occurrence: IN)
  Receive Date: 20250929
  Receipt Date: 20251003
  Transmission Date: 20260117
  Serious: Yes (Hospitalization)
  Sender: MACLEODS
  Company Number: IN-MLMSERVICE-20250912-PI638587-00176-2

PATIENT

DRUGS (3)
  1. HYDROCHLOROTHIAZIDE\LOSARTAN [Suspect]
     Active Substance: HYDROCHLOROTHIAZIDE\LOSARTAN
     Indication: Hypertension
     Dosage: LOSARTAN/HCTZ100/25 MG DAILY CHRONIC USE FOR SEVERAL YEARS
     Route: 048
  2. TIRZEPATIDE [Suspect]
     Active Substance: TIRZEPATIDE
     Indication: Type 2 diabetes mellitus
     Dosage: FIRST-EVER DOSE OF TIRZEPATIDE (2.5 MG SUBCUTANEOUSLY)
     Route: 058
  3. TIRZEPATIDE [Suspect]
     Active Substance: TIRZEPATIDE
     Indication: Obesity

REACTIONS (3)
  - Hypercalcaemia [Recovered/Resolved]
  - Mental status changes [Recovered/Resolved]
  - Drug interaction [Recovered/Resolved]
